FAERS Safety Report 25346992 (Version 2)
Quarter: 2025Q2

REPORT INFORMATION
  Report Type: Spontaneous
  Country: AR (occurrence: AR)
  Receive Date: 20250522
  Receipt Date: 20250628
  Transmission Date: 20250717
  Serious: Yes (Other)
  Sender: GLAXOSMITHKLINE
  Company Number: AR-GSK-AR2025AMR061703

PATIENT
  Age: 71 Year
  Sex: Female

DRUGS (1)
  1. JEMPERLI [Suspect]
     Active Substance: DOSTARLIMAB-GXLY
     Indication: Product used for unknown indication

REACTIONS (2)
  - Inflammation [Unknown]
  - Influenza [Unknown]

NARRATIVE: CASE EVENT DATE: 20250501
